FAERS Safety Report 4335384-6 (Version None)
Quarter: 2004Q2

REPORT INFORMATION
  Report Type: 
  Country: None (occurrence: None)
  Receive Date: 20040408
  Receipt Date: 20040408
  Transmission Date: 20050107
  Serious: Yes (Hospitalization)
  Sender: FDA-Public Use
  Company Number: None

PATIENT
  Sex: Female

DRUGS (8)
  1. GLIPIZIDE [Suspect]
     Indication: DIABETES MELLITUS NON-INSULIN-DEPENDENT
     Dosage: 10 MG PO QD
     Route: 048
  2. ASPIRIN [Concomitant]
  3. FLOXETINE [Concomitant]
  4. METOPROLOL [Concomitant]
  5. TRAMADONE [Concomitant]
  6. GEFITINIL [Concomitant]
  7. CETRIZINE [Concomitant]
  8. ATOVARATION [Concomitant]

REACTIONS (2)
  - BLOOD GLUCOSE DECREASED [None]
  - BLOOD GLUCOSE INCREASED [None]
